FAERS Safety Report 16133750 (Version 2)
Quarter: 2019Q2

REPORT INFORMATION
  Report Type: Spontaneous
  Country: FI (occurrence: FI)
  Receive Date: 20190329
  Receipt Date: 20190413
  Transmission Date: 20190711
  Serious: Yes (Other)
  Sender: FDA-Public Use
  Company Number: FI-009507513-1903FIN009079

PATIENT
  Sex: Female

DRUGS (1)
  1. NEXPLANON [Suspect]
     Active Substance: ETONOGESTREL
     Indication: CONTRACEPTION
     Dosage: 1 IMPLANT,  LEFT ARM
     Route: 059
     Dates: start: 201803, end: 20190312

REACTIONS (5)
  - Abdominal pain [Unknown]
  - General anaesthesia [Recovered/Resolved]
  - Device deployment issue [Recovered/Resolved]
  - Metrorrhagia [Unknown]
  - Complication associated with device [Recovered/Resolved]

NARRATIVE: CASE EVENT DATE: 201803
